FAERS Safety Report 6236956-4 (Version None)
Quarter: 2009Q2

REPORT INFORMATION
  Report Type: 
  Country: None (occurrence: None)
  Receive Date: 20090619
  Receipt Date: 20090226
  Transmission Date: 20091009
  Serious: No
  Sender: FDA-Public Use
  Company Number: US-ASTRAZENECA-2009UW05435

PATIENT
  Age: 24056 Day
  Sex: Female
  Weight: 57.2 kg

DRUGS (7)
  1. SYMBICORT [Suspect]
     Indication: CHRONIC OBSTRUCTIVE PULMONARY DISEASE
     Route: 055
     Dates: start: 20090224, end: 20090224
  2. ZOCOR [Concomitant]
  3. LOPRESSOR [Concomitant]
  4. JANUVIA [Concomitant]
  5. HYZAAR [Concomitant]
  6. VICODIN [Concomitant]
  7. NEURONTIN [Concomitant]

REACTIONS (3)
  - HEADACHE [None]
  - OROPHARYNGEAL PAIN [None]
  - SOMNOLENCE [None]
